FAERS Safety Report 7710726 (Version 4)
Quarter: 2019Q1

REPORT INFORMATION
  Report Type: Spontaneous
  Country: NL (occurrence: NL)
  Receive Date: 20101214
  Receipt Date: 20190220
  Transmission Date: 20190418
  Serious: Yes (Death, Hospitalization, Other)
  Sender: FDA-Public Use
  Company Number: NL-PFIZER INC-2010166577

PATIENT
  Age: 69 Year
  Sex: Male
  Weight: 73 kg

DRUGS (12)
  1. ACENOCOUMAROL [Concomitant]
     Active Substance: ACENOCOUMAROL
  2. PLAVIX [Concomitant]
     Active Substance: CLOPIDOGREL BISULFATE
     Dosage: 1 DF, 1X/DAY
  3. LYRICA [Suspect]
     Active Substance: PREGABALIN
     Indication: PAIN IN EXTREMITY
     Dosage: 300 MG, 1X/DAY
     Route: 048
     Dates: start: 2008
  4. OXYCONTIN [Concomitant]
     Active Substance: OXYCODONE HYDROCHLORIDE
  5. INSULIN [Concomitant]
     Active Substance: INSULIN NOS
     Dosage: UNK, PER SCHEDULE
     Route: 058
     Dates: start: 200810
  6. TRAMADOL. [Concomitant]
     Active Substance: TRAMADOL
  7. TILDIEM [Concomitant]
     Active Substance: DILTIAZEM HYDROCHLORIDE
     Dosage: 60 3X/DAY
  8. ASCAL [Concomitant]
     Dosage: 1 DF, 1X/DAY
  9. METFORMIN HCL [Suspect]
     Active Substance: METFORMIN HYDROCHLORIDE
     Dosage: 1 DF, 2X/DAY
     Route: 048
     Dates: start: 200810
  10. PANTOZOL [Concomitant]
     Active Substance: PANTOPRAZOLE SODIUM
     Dosage: 40 MG, UNK
     Route: 048
     Dates: start: 200810
  11. MOVICOLON [Concomitant]
     Active Substance: POLYETHYLENE GLYCOL 3350\POTASSIUM CHLORIDE\SODIUM BICARBONATE\SODIUM CHLORIDE
     Dosage: 1 DF, UNK
  12. PREDNISON [Concomitant]
     Active Substance: PREDNISONE
     Dosage: 60 MG, UNK
     Route: 048
     Dates: start: 200810

REACTIONS (3)
  - Alveolitis [Unknown]
  - Pulmonary fibrosis [Fatal]
  - Influenza virus test positive [Unknown]

NARRATIVE: CASE EVENT DATE: 20080930
